FAERS Safety Report 24381253 (Version 3)
Quarter: 2024Q4

REPORT INFORMATION
  Report Type: Spontaneous
  Country: US (occurrence: US)
  Receive Date: 20241001
  Receipt Date: 20241205
  Transmission Date: 20250115
  Serious: Yes (Other)
  Sender: RANBAXY
  Company Number: US-SUN PHARMACEUTICAL INDUSTRIES LTD-2024R1-469682

PATIENT
  Age: 71 Year
  Sex: Female
  Weight: 56.236 kg

DRUGS (2)
  1. ILUMYA [Suspect]
     Active Substance: TILDRAKIZUMAB-ASMN
     Indication: Psoriasis
     Dosage: UNK (ONCE A MONTH)
     Route: 058
     Dates: start: 202407
  2. ILUMYA [Suspect]
     Active Substance: TILDRAKIZUMAB-ASMN
     Dosage: UNK  (ONCE A MONTH)
     Route: 058
     Dates: start: 202408

REACTIONS (3)
  - Condition aggravated [Unknown]
  - Infection [Unknown]
  - Product dose omission issue [Unknown]
